FAERS Safety Report 5135846-8 (Version None)
Quarter: 2006Q4

REPORT INFORMATION
  Report Type: 
  Country: None (occurrence: None)
  Receive Date: 20061026
  Receipt Date: 20061013
  Transmission Date: 20070319
  Serious: Yes (Hospitalization)
  Sender: FDA-Public Use
  Company Number: PHEH2006US12957

PATIENT
  Age: 43 Year
  Sex: Male
  Weight: 114.74 kg

DRUGS (9)
  1. LOTREL [Suspect]
     Dosage: 10/40, QD
     Route: 048
     Dates: start: 20060728
  2. LOTREL [Suspect]
     Dosage: 10/20
  3. AMILORIDE HYDROCHLORIDE [Suspect]
  4. HYDROCHLOROTHIAZIDE [Suspect]
  5. METOPROLOL TARTRATE [Concomitant]
     Dosage: 50 MG, BID
     Route: 048
  6. GLUCOPHAGE - SLOW RELEASE [Concomitant]
     Dosage: 500 MG, 2 QPM
     Route: 048
  7. CRESTOR [Concomitant]
     Dosage: 5 MG, QD
     Route: 048
  8. METFORMIN HCL [Concomitant]
     Dosage: 500 MG, BID
  9. CIALIS [Concomitant]
     Dosage: 20 MG, UNK
     Route: 048

REACTIONS (8)
  - AMNESIA [None]
  - BLOOD CHLORIDE DECREASED [None]
  - BLOOD CREATINE PHOSPHOKINASE INCREASED [None]
  - CONVULSION [None]
  - DIARRHOEA [None]
  - FALL [None]
  - FIBRIN D DIMER INCREASED [None]
  - HYPONATRAEMIA [None]
